FAERS Safety Report 8880098 (Version 2)
Quarter: 2013Q2

REPORT INFORMATION
  Report Type: Report from Study
  Country: BR (occurrence: BR)
  Receive Date: 20121031
  Receipt Date: 20130411
  Transmission Date: 20140414
  Serious: Yes (Hospitalization, Other)
  Sender: FDA-Public Use
  Company Number: BR-ABBOTT-12P-020-1000047-00

PATIENT
  Age: 63 Year
  Sex: Female
  Weight: 78 kg

DRUGS (19)
  1. HUMIRA [Suspect]
     Indication: ANKYLOSING SPONDYLITIS
     Route: 058
     Dates: start: 20090813, end: 201212
  2. HUMIRA [Suspect]
     Route: 058
     Dates: start: 20130214
  3. METHOTREXATE [Concomitant]
     Indication: SPONDYLITIS
     Route: 048
     Dates: start: 2008
  4. FOLIC ACID [Concomitant]
     Indication: SPONDYLITIS
     Route: 048
     Dates: start: 2008
  5. CEBRALAT [Concomitant]
     Indication: CEREBROVASCULAR ACCIDENT
     Route: 048
     Dates: start: 2006
  6. SELO-ZOK [Concomitant]
     Indication: CARDIAC DISORDER
     Route: 048
     Dates: start: 201106
  7. GLUCOFORMIN [Concomitant]
     Indication: DIABETES MELLITUS
     Dosage: 3 TABLET 850 (UNIT NOT INFORMED)
     Route: 048
     Dates: start: 2006
  8. DAONIL [Concomitant]
     Indication: DIABETES MELLITUS
     Route: 048
     Dates: start: 2006
  9. AAS [Concomitant]
     Indication: CARDIOVASCULAR DISORDER
     Route: 048
     Dates: start: 2006
  10. SIMVASTATIN [Concomitant]
     Indication: BLOOD CHOLESTEROL ABNORMAL
     Route: 048
     Dates: start: 201106
  11. ENALAPRIL [Concomitant]
     Indication: BLOOD PRESSURE ABNORMAL
  12. CLOPIDOGREL [Concomitant]
     Indication: CARDIAC DISORDER
  13. CLOPIDOGREL [Concomitant]
     Indication: VASODILATATION
  14. CLOPIDOGREL [Concomitant]
     Indication: FATIGUE
  15. CLOPIDOGREL [Concomitant]
     Indication: PROPHYLAXIS
  16. VASTAREL [Concomitant]
     Indication: CARDIAC DISORDER
  17. VASTAREL [Concomitant]
     Indication: VASODILATATION
  18. VASTAREL [Concomitant]
     Indication: FATIGUE
  19. VASTAREL [Concomitant]
     Indication: PROPHYLAXIS

REACTIONS (7)
  - Infarction [Recovered/Resolved]
  - Renal disorder [Unknown]
  - Infarction [Unknown]
  - Chest pain [Unknown]
  - Dyspnoea [Unknown]
  - Ankylosing spondylitis [Recovered/Resolved]
  - Venous occlusion [Unknown]
